FAERS Safety Report 6027152-4 (Version None)
Quarter: 2009Q1

REPORT INFORMATION
  Report Type: 
  Country: None (occurrence: None)
  Receive Date: 20090105
  Receipt Date: 20081225
  Transmission Date: 20090719
  Serious: Yes (Life-Threatening)
  Sender: FDA-Public Use
  Company Number: JP-TYCO HEALTHCARE/MALLINCKRODT-T200802074

PATIENT

DRUGS (7)
  1. OPTIRAY 300 [Suspect]
     Indication: COMPUTERISED TOMOGRAM
     Dosage: 97 ML, SINGLE
     Route: 042
     Dates: start: 20081205, end: 20081205
  2. IRINOTECAN HYDROCHLORIDE [Concomitant]
     Indication: CERVIX CARCINOMA
     Dosage: 97 MG, QD
     Route: 042
  3. NEDAPLATIN [Concomitant]
     Indication: CERVIX CARCINOMA
     Dosage: 130 MG, QD
     Route: 042
  4. GRANISETRON HCL [Concomitant]
     Indication: CERVIX CARCINOMA
     Dosage: 3 MG, QD
     Route: 042
  5. SCOPOLAMINE BUTHYLBROMIDE [Concomitant]
     Indication: CERVIX CARCINOMA
     Dosage: 20 MG, QD
     Route: 042
  6. FLUNITRAZEPAM [Concomitant]
     Indication: CERVIX CARCINOMA
     Dosage: 1 MG, QD
     Route: 042
  7. DEXAMETHASONE SODIUM PHOSPHATE [Concomitant]
     Indication: CERVIX CARCINOMA
     Dosage: 8 MG, QD
     Route: 042

REACTIONS (1)
  - SHOCK [None]
